FAERS Safety Report 15211754 (Version 1)
Quarter: 2018Q3

REPORT INFORMATION
  Report Type: Spontaneous
  Country: US (occurrence: US)
  Receive Date: 20180702
  Receipt Date: 20180702
  Transmission Date: 20181010
  Serious: Yes (Hospitalization, Disabling)
  Sender: FDA-Public Use
  Company Number: None

PATIENT
  Age: 68 Year
  Sex: Female
  Weight: 75.15 kg

DRUGS (14)
  1. OLMESARTAN MEDOXOMIL. [Suspect]
     Active Substance: OLMESARTAN MEDOXOMIL
     Indication: HYPERTENSION
     Dosage: ?          QUANTITY:1 TABLET(S);?
     Route: 048
  2. ATORVASTATIN [Concomitant]
     Active Substance: ATORVASTATIN
  3. PANTOPRAZOLE [Concomitant]
     Active Substance: PANTOPRAZOLE
  4. PREDNISONE. [Concomitant]
     Active Substance: PREDNISONE
  5. BENICAR [Suspect]
     Active Substance: OLMESARTAN MEDOXOMIL
  6. CHOLESTYRAMINE. [Concomitant]
     Active Substance: CHOLESTYRAMINE
  7. IMODIUM AD [Concomitant]
     Active Substance: LOPERAMIDE HYDROCHLORIDE
  8. CALCIUM, 1200 MG VITAMIN D3 [Concomitant]
  9. BUDESONIDE. [Concomitant]
     Active Substance: BUDESONIDE
  10. DILTIAZEM CD [Concomitant]
     Active Substance: DILTIAZEM
  11. FLONASE [Concomitant]
     Active Substance: FLUTICASONE PROPIONATE
  12. OLMESARTAN MEDOXOMIL. [Concomitant]
     Active Substance: OLMESARTAN MEDOXOMIL
  13. PRIMIDONE. [Concomitant]
     Active Substance: PRIMIDONE
  14. SPIRONOLACTONE. [Concomitant]
     Active Substance: SPIRONOLACTONE

REACTIONS (5)
  - Malabsorption [None]
  - Dehydration [None]
  - Renal failure [None]
  - Apoptosis [None]
  - Diarrhoea [None]

NARRATIVE: CASE EVENT DATE: 20150815
